FAERS Safety Report 22108045 (Version 1)
Quarter: 2023Q1

REPORT INFORMATION
  Report Type: Spontaneous
  Country: JP (occurrence: None)
  Receive Date: 20230317
  Receipt Date: 20230317
  Transmission Date: 20230418
  Serious: Yes (Death, Other)
  Sender: FDA-Public Use
  Company Number: JP-MICRO LABS LIMITED-ML2023-01490

PATIENT
  Age: 78 Year
  Sex: Female
  Weight: 30 kg

DRUGS (11)
  1. VERAPAMIL HYDROCHLORIDE [Suspect]
     Active Substance: VERAPAMIL HYDROCHLORIDE
     Indication: Arrhythmia
  2. VERAPAMIL HYDROCHLORIDE [Suspect]
     Active Substance: VERAPAMIL HYDROCHLORIDE
     Indication: Cardiac failure chronic
  3. PILSICAINIDE [Suspect]
     Active Substance: PILSICAINIDE
     Indication: Cardiac failure chronic
     Route: 048
  4. PILSICAINIDE [Suspect]
     Active Substance: PILSICAINIDE
     Indication: Arrhythmia
  5. FUROSEMIDE [Concomitant]
     Active Substance: FUROSEMIDE
     Indication: Arrhythmia
  6. FUROSEMIDE [Concomitant]
     Active Substance: FUROSEMIDE
     Indication: Cardiac failure chronic
  7. WARFARIN [Concomitant]
     Active Substance: WARFARIN
     Indication: Arrhythmia
  8. WARFARIN [Concomitant]
     Active Substance: WARFARIN
     Indication: Cardiac failure chronic
  9. ACETAMINOPHEN [Concomitant]
     Active Substance: ACETAMINOPHEN
     Indication: Product used for unknown indication
  10. EPHEDRINE [Concomitant]
     Active Substance: EPHEDRINE
     Indication: Product used for unknown indication
  11. METHYLEPHEDRINE [Concomitant]
     Active Substance: METHYLEPHEDRINE
     Indication: Product used for unknown indication

REACTIONS (4)
  - Toxicity to various agents [Fatal]
  - Drug level increased [Fatal]
  - Cardio-respiratory arrest [Fatal]
  - Drug interaction [Fatal]
